FAERS Safety Report 18973224 (Version 1)
Quarter: 2021Q1

REPORT INFORMATION
  Report Type: Spontaneous
  Country: FR (occurrence: FR)
  Receive Date: 20210305
  Receipt Date: 20210305
  Transmission Date: 20210420
  Serious: Yes (Disabling)
  Sender: FDA-Public Use
  Company Number: FR-ACCORD-218740

PATIENT
  Age: 52 Year
  Sex: Female
  Weight: 53 kg

DRUGS (3)
  1. LEVOTHYROX [Concomitant]
     Active Substance: LEVOTHYROXINE
     Dosage: SCORED TABLET
  2. FLECAINIDE [Concomitant]
     Active Substance: FLECAINIDE
     Dosage: SCORED TABLET
  3. ATORVASTATIN ACCORD [Suspect]
     Active Substance: ATORVASTATIN
     Indication: DYSLIPIDAEMIA
     Dosage: STRENGTH: 10 MG
     Route: 048
     Dates: start: 20201119, end: 20201226

REACTIONS (3)
  - Dizziness [Not Recovered/Not Resolved]
  - Amnesia [Not Recovered/Not Resolved]
  - Hot flush [Not Recovered/Not Resolved]

NARRATIVE: CASE EVENT DATE: 20201201
